FAERS Safety Report 7434762-6 (Version None)
Quarter: 2011Q2

REPORT INFORMATION
  Report Type: 
  Country: None (occurrence: None)
  Receive Date: 20110425
  Receipt Date: 20110412
  Transmission Date: 20111010
  Serious: Yes (Disabling)
  Sender: FDA-Public Use
  Company Number: US-CELGENEUS-163-21880-10113205

PATIENT
  Sex: Female

DRUGS (3)
  1. REVLIMID [Suspect]
     Indication: MULTIPLE MYELOMA
     Dosage: 10 MILLIGRAM
     Route: 048
     Dates: start: 20101103
  2. DECADRON [Concomitant]
     Route: 048
     Dates: start: 20101011
  3. ZOMETA [Concomitant]
     Route: 065
     Dates: start: 20101011, end: 20101201

REACTIONS (4)
  - PAIN IN EXTREMITY [None]
  - TREATMENT NONCOMPLIANCE [None]
  - DIZZINESS [None]
  - ANXIETY [None]
